FAERS Safety Report 12863930 (Version 2)
Quarter: 2017Q1

REPORT INFORMATION
  Report Type: Other
  Country: FR (occurrence: FR)
  Receive Date: 20161019
  Receipt Date: 20170309
  Transmission Date: 20170428
  Serious: Yes (Hospitalization)
  Sender: FDA-Public Use
  Company Number: FR-TAKEDA-2016MPI008920

PATIENT
  Age: 60 Year
  Sex: Male

DRUGS (9)
  1. DEXAMETHASONE. [Suspect]
     Active Substance: DEXAMETHASONE
     Indication: PLASMA CELL MYELOMA
     Dosage: 40 MG, UNK
     Route: 048
     Dates: start: 20160811
  2. REVLIMID [Suspect]
     Active Substance: LENALIDOMIDE
     Indication: PLASMA CELL MYELOMA
     Dosage: 5 MG, QD
     Route: 048
     Dates: start: 20160902, end: 20160920
  3. ZELITREX [Suspect]
     Active Substance: VALACYCLOVIR HYDROCHLORIDE
     Indication: PROPHYLAXIS
     Dosage: 500 MG, QD
     Route: 048
     Dates: start: 20160906, end: 20160927
  4. VELCADE [Suspect]
     Active Substance: BORTEZOMIB
     Indication: PLASMA CELL MYELOMA
     Dosage: 2 MG, UNK
     Route: 042
     Dates: start: 20160811
  5. ZELITREX [Suspect]
     Active Substance: VALACYCLOVIR HYDROCHLORIDE
     Dosage: UNK
     Route: 048
     Dates: start: 20161010, end: 20161012
  6. LASILIX [Suspect]
     Active Substance: FUROSEMIDE
     Indication: RENAL FAILURE
     Dosage: 125 MG, QD
     Route: 048
     Dates: start: 20160912, end: 20161006
  7. INEXIUM                            /01479302/ [Suspect]
     Active Substance: ESOMEPRAZOLE MAGNESIUM
     Indication: GASTRITIS
     Dosage: 40 MG, QD
     Route: 048
     Dates: start: 20160824, end: 20161003
  8. ZOPHREN                            /00955301/ [Suspect]
     Active Substance: ONDANSETRON
     Indication: NAUSEA
     Dosage: 4 MG, UNK
     Route: 048
     Dates: start: 20160902, end: 20161003
  9. THALIDOMIDE [Suspect]
     Active Substance: THALIDOMIDE
     Indication: PLASMA CELL MYELOMA
     Dosage: 100 MG, QD
     Route: 065
     Dates: start: 20160811, end: 20160824

REACTIONS (8)
  - Vomiting [Recovered/Resolved]
  - Eosinophilia [Recovering/Resolving]
  - Nausea [Recovered/Resolved]
  - Dermatitis exfoliative [Recovered/Resolved]
  - Pyrexia [Recovering/Resolving]
  - Pruritus [Recovering/Resolving]
  - Off label use [Unknown]
  - Productive cough [Recovering/Resolving]

NARRATIVE: CASE EVENT DATE: 20160922
